FAERS Safety Report 25380276 (Version 3)
Quarter: 2025Q3

REPORT INFORMATION
  Report Type: Spontaneous
  Country: US (occurrence: US)
  Receive Date: 20250530
  Receipt Date: 20250831
  Transmission Date: 20251020
  Serious: Yes (Other)
  Sender: SANOFI AVENTIS
  Company Number: US-SA-2025SA153667

PATIENT
  Age: 8 Month
  Sex: Male
  Weight: 9.161 kg

DRUGS (1)
  1. DUPIXENT [Suspect]
     Active Substance: DUPILUMAB
     Indication: Dermatitis atopic
     Dosage: 200 MG, Q4W
     Route: 058
     Dates: end: 2025

REACTIONS (5)
  - Seizure [Unknown]
  - Dry skin [Recovering/Resolving]
  - Rash [Recovering/Resolving]
  - Therapeutic response shortened [Recovering/Resolving]
  - Surgery [Unknown]

NARRATIVE: CASE EVENT DATE: 20250101
